FAERS Safety Report 8475572 (Version 5)
Quarter: 2013Q3

REPORT INFORMATION
  Report Type: Spontaneous
  Country: US (occurrence: US)
  Receive Date: 20120326
  Receipt Date: 20130809
  Transmission Date: 20140515
  Serious: Yes (Hospitalization, Disabling)
  Sender: FDA-Public Use
  Company Number: US-US-EMD SERONO, INC.-7120420

PATIENT
  Age: 2 Year
  Sex: Male
  Weight: 28 kg

DRUGS (5)
  1. SAIZEN [(SOMATROPIN (RDNA ORIGIN) FOR INJECTION)] [Suspect]
     Indication: GROWTH HORMONE DEFICIENCY
     Route: 058
     Dates: start: 20120315
  2. SAIZEN [(SOMATROPIN (RDNA ORIGIN) FOR INJECTION)] [Suspect]
     Indication: HYPOPITUITARISM
     Route: 058
     Dates: start: 20120606
  3. SYNTHROID [Concomitant]
     Indication: HYPOPITUITARISM
  4. CORTEF                             /00028601/ [Concomitant]
     Indication: HYPOPITUITARISM
     Dosage: 1.5 TABLETS IN AM, 1 TABLET IN PM
  5. KEPPRA [Concomitant]
     Indication: HYPOGLYCAEMIC SEIZURE

REACTIONS (10)
  - Hypoglycaemic seizure [Recovered/Resolved]
  - Partial seizures [Recovered/Resolved]
  - Sinus congestion [Unknown]
  - Lymphocyte count increased [Unknown]
  - Neutrophil count decreased [Unknown]
  - Blood creatinine decreased [Unknown]
  - Blood calcium increased [Unknown]
  - Blood glucose abnormal [Unknown]
  - Blood alkaline phosphatase increased [Unknown]
  - Treatment noncompliance [Unknown]
